FAERS Safety Report 24731732 (Version 1)
Quarter: 2024Q4

REPORT INFORMATION
  Report Type: Spontaneous
  Country: FR (occurrence: FR)
  Receive Date: 20241213
  Receipt Date: 20241213
  Transmission Date: 20250114
  Serious: Yes (Hospitalization)
  Sender: MERCK
  Company Number: None

PATIENT
  Age: 64 Year
  Sex: Male

DRUGS (12)
  1. KEYTRUDA [Suspect]
     Active Substance: PEMBROLIZUMAB
     Indication: Squamous cell carcinoma of lung
     Dosage: C3
     Route: 042
     Dates: start: 20240906, end: 20240906
  2. KEYTRUDA [Suspect]
     Active Substance: PEMBROLIZUMAB
     Dosage: C4
     Route: 042
     Dates: start: 20241001, end: 20241001
  3. KEYTRUDA [Suspect]
     Active Substance: PEMBROLIZUMAB
     Dosage: C5
     Route: 042
     Dates: start: 20241023, end: 20241023
  4. CARBOPLATIN [Suspect]
     Active Substance: CARBOPLATIN
     Indication: Squamous cell carcinoma of lung
     Dosage: C1
     Route: 042
     Dates: start: 20240725, end: 20240725
  5. CARBOPLATIN [Suspect]
     Active Substance: CARBOPLATIN
     Dosage: C3
     Route: 042
     Dates: start: 20240906, end: 20240906
  6. CARBOPLATIN [Suspect]
     Active Substance: CARBOPLATIN
     Dosage: C4
     Route: 042
     Dates: start: 20241001, end: 20241001
  7. CARBOPLATIN [Suspect]
     Active Substance: CARBOPLATIN
     Dosage: C5
     Route: 042
     Dates: start: 20241023, end: 20241023
  8. TAXOL [Suspect]
     Active Substance: PACLITAXEL
     Indication: Squamous cell carcinoma of lung
     Dosage: C1
     Route: 042
     Dates: start: 20240725, end: 20240725
  9. TAXOL [Suspect]
     Active Substance: PACLITAXEL
     Dosage: C2
     Route: 042
     Dates: start: 20240816, end: 20240816
  10. TAXOL [Suspect]
     Active Substance: PACLITAXEL
     Dosage: C3
     Route: 042
     Dates: start: 20240906, end: 20240906
  11. TAXOL [Suspect]
     Active Substance: PACLITAXEL
     Dosage: C4
     Route: 042
     Dates: start: 20241001, end: 20241001
  12. TAXOL [Suspect]
     Active Substance: PACLITAXEL
     Dosage: C5
     Route: 042
     Dates: start: 20241023, end: 20241023

REACTIONS (3)
  - Skin reaction [Recovered/Resolved]
  - Hypotension [Recovered/Resolved]
  - Hyperthermia [Recovered/Resolved]

NARRATIVE: CASE EVENT DATE: 20241001
